FAERS Safety Report 9099562 (Version 1)
Quarter: 2013Q1

REPORT INFORMATION
  Report Type: Spontaneous
  Country: DE (occurrence: DE)
  Receive Date: 20130214
  Receipt Date: 20130214
  Transmission Date: 20140127
  Serious: Yes (Other)
  Sender: FDA-Public Use
  Company Number: PHHY2013DE013893

PATIENT
  Age: 34 Year
  Sex: Female

DRUGS (20)
  1. CLOZAPINE [Suspect]
     Indication: AGGRESSION
     Dosage: 125 MG,
  2. CLOZAPINE [Interacting]
     Dosage: 75 MG,
  3. CLOZAPINE [Interacting]
     Dosage: 250 MG,
  4. CLOZAPINE [Interacting]
     Dosage: 150 MG,
  5. PERAZINE [Interacting]
     Indication: SCHIZOPHRENIA, CATATONIC TYPE
     Dosage: 150 MG,
  6. PERAZINE [Interacting]
     Dosage: 250 MG,
  7. LITHIUM CARBONATE [Concomitant]
     Dosage: 900 MG,
  8. LITHIUM CARBONATE [Concomitant]
     Dosage: 675 MG,
  9. LAMOTRIGINE [Concomitant]
     Dosage: 200 MG, UNK
  10. LAMOTRIGINE [Concomitant]
     Dosage: 50 MG, UNK
  11. HALOPERIDOL [Concomitant]
     Dosage: 20 MG, UNK
  12. HALOPERIDOL [Concomitant]
     Dosage: 27.5 MG, UNK
  13. HALOPERIDOL [Concomitant]
     Dosage: 30 MG, UNK
  14. HALOPERIDOL [Concomitant]
     Dosage: 15 MG, UNK
  15. BIPERIDEN [Concomitant]
     Dosage: 2 MG, UNK
  16. PIRENZEPINE [Concomitant]
     Dosage: 75 MG, UNK
  17. PIRENZEPINE [Concomitant]
     Dosage: 150 MG, UNK
  18. L-THYROXINE [Concomitant]
     Dosage: 0.1 MG, UNK
  19. VALPROATE [Concomitant]
     Dosage: 300 MG, UNK
  20. SERTRALINE [Concomitant]
     Dosage: 50 MG, UNK

REACTIONS (3)
  - Drug interaction [Unknown]
  - Antipsychotic drug level increased [Unknown]
  - Fatigue [Unknown]
